FAERS Safety Report 10136459 (Version 1)
Quarter: 2014Q2

REPORT INFORMATION
  Report Type: Spontaneous
  Country: US (occurrence: None)
  Receive Date: 20140425
  Receipt Date: 20140425
  Transmission Date: 20141212
  Serious: Yes (Hospitalization)
  Sender: FDA-Public Use
  Company Number: UTC-045726

PATIENT
  Age: 82 Year
  Sex: Female

DRUGS (8)
  1. TYVASO [Suspect]
     Indication: PULMONARY ARTERIAL HYPERTENSION
     Dosage: 288 MCG (72 MCG, 4 IN 1 D)?
     Dates: start: 20110817
  2. ADCIRCA (TADALAFIL) (UNKNOWN) [Concomitant]
  3. ASPIRIN (ACETYLSALICYLIC ACID) (UNKNOWN) (ACETYLSALICYLIC ACID) [Concomitant]
  4. WARFARIN (WARFARIN) (UNKNOWN) [Concomitant]
  5. METOLAZONE (METOLAZONE) (UNKNOWN) [Concomitant]
  6. HYDRALAZINE HYDROCHLORIDE [Concomitant]
  7. BENZONATATE (BENZONATATE) (UNKNOWN) [Concomitant]
  8. FUROSEMIDE (FUROSEMIDE) (UNKNOWN) [Concomitant]

REACTIONS (3)
  - Pneumonia [None]
  - Fluid retention [None]
  - Asthenia [None]
